FAERS Safety Report 5882699-6 (Version None)
Quarter: 2008Q3

REPORT INFORMATION
  Report Type: 
  Country: None (occurrence: None)
  Receive Date: 20080913
  Receipt Date: 20080813
  Transmission Date: 20090109
  Serious: No
  Sender: FDA-Public Use
  Company Number: US-ABBOTT-08P-163-0470589-00

PATIENT
  Sex: Female

DRUGS (1)
  1. HUMIRA [Suspect]
     Indication: RHEUMATOID ARTHRITIS
     Dates: start: 20080502

REACTIONS (15)
  - DECREASED APPETITE [None]
  - DYSPHONIA [None]
  - IMMUNE SYSTEM DISORDER [None]
  - IMPAIRED HEALING [None]
  - INFLUENZA [None]
  - INSOMNIA [None]
  - JOINT SWELLING [None]
  - MEMORY IMPAIRMENT [None]
  - MONOPLEGIA [None]
  - MUSCLE RIGIDITY [None]
  - MUSCLE SWELLING [None]
  - NASOPHARYNGITIS [None]
  - PAIN [None]
  - TREATMENT NONCOMPLIANCE [None]
  - WEIGHT DECREASED [None]
